FAERS Safety Report 24855088 (Version 4)
Quarter: 2025Q2

REPORT INFORMATION
  Report Type: Report from Study
  Country: US (occurrence: US)
  Receive Date: 20250117
  Receipt Date: 20250603
  Transmission Date: 20250717
  Serious: Yes (Hospitalization, Other)
  Sender: MERCK SHARP & DOHME LLC
  Company Number: US-009507513-2501USA003993

PATIENT
  Age: 70 Year
  Sex: Female
  Weight: 60.771 kg

DRUGS (31)
  1. WINREVAIR [Suspect]
     Active Substance: SOTATERCEPT-CSRK
     Indication: Product used for unknown indication
  2. WINREVAIR [Suspect]
     Active Substance: SOTATERCEPT-CSRK
  3. WINREVAIR [Suspect]
     Active Substance: SOTATERCEPT-CSRK
  4. WINREVAIR [Suspect]
     Active Substance: SOTATERCEPT-CSRK
  5. WINREVAIR [Suspect]
     Active Substance: SOTATERCEPT-CSRK
     Indication: Pulmonary arterial hypertension
     Dosage: DOSE DESCRIPTION : 0.8 MILLILITER, Q3W, STRENGTH 45 MG?DAILY DOSE : 0.038 MILLILITER?REGIMEN DOSE...
     Route: 058
     Dates: start: 2024, end: 202501
  6. WINREVAIR [Suspect]
     Active Substance: SOTATERCEPT-CSRK
  7. WINREVAIR [Suspect]
     Active Substance: SOTATERCEPT-CSRK
  8. WINREVAIR [Suspect]
     Active Substance: SOTATERCEPT-CSRK
  9. REMODULIN [Suspect]
     Active Substance: TREPROSTINIL
     Indication: Pulmonary arterial hypertension
     Route: 058
  10. REMODULIN [Suspect]
     Active Substance: TREPROSTINIL
     Indication: Pulmonary arterial hypertension
     Route: 058
     Dates: start: 20150202
  11. PEPCID AC [Concomitant]
     Active Substance: FAMOTIDINE
  12. CYMBALTA [Concomitant]
     Active Substance: DULOXETINE HYDROCHLORIDE
  13. PREDNISONE [Concomitant]
     Active Substance: PREDNISONE
  14. TYLENOL EXTRA STRENGTH [Concomitant]
     Active Substance: ACETAMINOPHEN
  15. SODIUM CHLORIDE [Concomitant]
     Active Substance: SODIUM CHLORIDE
  16. PANTOPRAZOLE SODIUM [Concomitant]
     Active Substance: PANTOPRAZOLE SODIUM
  17. TADALAFIL [Concomitant]
     Active Substance: TADALAFIL
  18. XANAX [Concomitant]
     Active Substance: ALPRAZOLAM
  19. OXYGEN [Concomitant]
     Active Substance: OXYGEN
  20. AMBRISENTAN [Concomitant]
     Active Substance: AMBRISENTAN
  21. LOPERAMIDE [Concomitant]
     Active Substance: LOPERAMIDE
  22. CLARITIN [Concomitant]
     Active Substance: LORATADINE
  23. ASPIRIN [Concomitant]
     Active Substance: ASPIRIN
  24. KETAMINE HYDROCHLORIDE [Concomitant]
     Active Substance: KETAMINE HYDROCHLORIDE
  25. LECITHIN [Concomitant]
     Active Substance: LECITHIN
  26. CLONIDINE [Concomitant]
     Active Substance: CLONIDINE
  27. KETOPROFEN [Concomitant]
     Active Substance: KETOPROFEN
  28. LIDOCAINE HYDROCHLORIDE [Concomitant]
     Active Substance: LIDOCAINE HYDROCHLORIDE
  29. AMITRIPTYLINE HYDROCHLORIDE [Concomitant]
     Active Substance: AMITRIPTYLINE HYDROCHLORIDE
  30. GABAPENTIN [Concomitant]
     Active Substance: GABAPENTIN
  31. POLOXAMER [Concomitant]
     Active Substance: POLOXAMER

REACTIONS (5)
  - Gastrointestinal haemorrhage [Unknown]
  - Diarrhoea [Unknown]
  - Rectal haemorrhage [Unknown]
  - Nasal congestion [Unknown]
  - Epistaxis [Unknown]

NARRATIVE: CASE EVENT DATE: 20250101
